FAERS Safety Report 19177466 (Version 1)
Quarter: 2021Q2

REPORT INFORMATION
  Report Type: Spontaneous
  Country: US (occurrence: US)
  Receive Date: 20210423
  Receipt Date: 20210423
  Transmission Date: 20210717
  Serious: Yes (Hospitalization)
  Sender: FDA-Public Use
  Company Number: None

PATIENT
  Age: 48 Year
  Sex: Male

DRUGS (4)
  1. PONATINIB [Concomitant]
     Active Substance: PONATINIB
  2. BAMLANIVIMAB. [Suspect]
     Active Substance: BAMLANIVIMAB
     Dates: start: 20210102
  3. PREDNISONE. [Concomitant]
     Active Substance: PREDNISONE
  4. TACROLIMUS. [Concomitant]
     Active Substance: TACROLIMUS

REACTIONS (1)
  - Hospitalisation [None]

NARRATIVE: CASE EVENT DATE: 20210104
